FAERS Safety Report 13024924 (Version 2)
Quarter: 2017Q1

REPORT INFORMATION
  Report Type: Report from Study
  Country: US (occurrence: US)
  Receive Date: 20161213
  Receipt Date: 20170203
  Transmission Date: 20170428
  Serious: Yes (Other)
  Sender: FDA-Public Use
  Company Number: US-SA-2016SA224796

PATIENT
  Age: 57 Year
  Sex: Male

DRUGS (1)
  1. LEMTRADA [Suspect]
     Active Substance: ALEMTUZUMAB
     Indication: MULTIPLE SCLEROSIS
     Route: 041
     Dates: start: 20161114, end: 20161118

REACTIONS (10)
  - Productive cough [Recovered/Resolved]
  - Pulmonary oedema [Recovered/Resolved]
  - Gastrooesophageal reflux disease [Recovered/Resolved]
  - Mobility decreased [Recovered/Resolved]
  - Dyspnoea [Recovered/Resolved]
  - Weight increased [Recovered/Resolved]
  - Myalgia [Unknown]
  - Rash [Recovered/Resolved]
  - Nasopharyngitis [Recovered/Resolved]
  - Pain [Recovered/Resolved]

NARRATIVE: CASE EVENT DATE: 2016
